FAERS Safety Report 7230524 (Version 4)
Quarter: 2013Q1

REPORT INFORMATION
  Report Type: Spontaneous
  Country: US (occurrence: US)
  Receive Date: 20091224
  Receipt Date: 20130124
  Transmission Date: 20140127
  Serious: Yes (Hospitalization, Other)
  Sender: FDA-Public Use
  Company Number: US-BAYER-200943413NA

PATIENT
  Age: 33 Year
  Sex: Female
  Weight: 131.82 kg

DRUGS (9)
  1. YASMIN [Suspect]
     Indication: CONTRACEPTION
     Route: 048
     Dates: start: 20071029
  2. TRAMADOL [Concomitant]
     Dosage: 50 MG, QID IF NEEDED
     Route: 048
  3. ASPIRIN [Concomitant]
  4. ENALAPRIL [Concomitant]
  5. METFORMIN [Concomitant]
  6. ZANTAC [Concomitant]
     Indication: GASTROOESOPHAGEAL REFLUX DISEASE
  7. PROGESTERONE [Concomitant]
     Indication: AMENORRHOEA
     Dosage: 200 MG, UNK
     Route: 030
     Dates: start: 20071130
  8. PROGESTINE [Concomitant]
  9. RANITIDINE [Concomitant]

REACTIONS (9)
  - Deep vein thrombosis [Unknown]
  - Pain in extremity [Unknown]
  - Swelling [Unknown]
  - Gait disturbance [Unknown]
  - Homans^ sign positive [Unknown]
  - Menorrhagia [Unknown]
  - Iron deficiency anaemia [Unknown]
  - Anxiety [None]
  - Depression [None]
